FAERS Safety Report 7068902-8 (Version None)
Quarter: 2010Q4

REPORT INFORMATION
  Report Type: 
  Country: None (occurrence: None)
  Receive Date: 20101028
  Receipt Date: 20101015
  Transmission Date: 20110411
  Serious: Yes (Hospitalization)
  Sender: FDA-Public Use
  Company Number: US-ELI_LILLY_AND_COMPANY-US201009006419

PATIENT
  Sex: Male

DRUGS (22)
  1. GEMCITABINE HCL [Suspect]
     Indication: PANCREATIC CARCINOMA
     Dosage: 1930 MG, UNK
     Dates: start: 20100310, end: 20100402
  2. PACLITAXEL [Suspect]
     Indication: PANCREATIC CARCINOMA
     Dosage: UNK, WEEKLY (1/W)
     Dates: start: 20100310, end: 20100402
  3. PRAVACHOL [Concomitant]
     Indication: HYPERLIPIDAEMIA
     Dosage: 40 MG, UNK
     Route: 048
     Dates: start: 20100219
  4. ASPIRIN LOW [Concomitant]
     Dosage: 81 MG, UNK
     Route: 048
     Dates: start: 20100219
  5. CARTIA XT [Concomitant]
     Dosage: 240 MG, UNK
     Route: 048
     Dates: start: 20100219
  6. DIOVAN [Concomitant]
     Dosage: 12.5 MG, UNK
     Route: 048
     Dates: start: 20100219
  7. ARICEPT [Concomitant]
     Dosage: 10 MG, UNK
     Route: 048
     Dates: start: 20100219
  8. HUMALOG [Concomitant]
     Dosage: 100 D/F, UNK
     Dates: start: 20100219
  9. VITAMIN B6 [Concomitant]
     Route: 048
     Dates: start: 20100219
  10. VITAMIN B-12 [Concomitant]
     Dosage: 1000 UG, UNK
     Route: 048
     Dates: start: 20100219
  11. FOLIC ACID [Concomitant]
     Dosage: 2 MG, UNK
     Route: 048
     Dates: start: 20100219
  12. MEMANTINE [Concomitant]
     Dosage: 10 MG, UNK
     Route: 048
     Dates: start: 20100219
  13. PAXIL [Concomitant]
     Dosage: UNK, UNK
     Route: 048
     Dates: start: 20100219
  14. NEURONTIN [Concomitant]
     Dosage: 100 MG, UNK
     Route: 048
     Dates: start: 20100219
  15. PLAVIX [Concomitant]
     Indication: PROPHYLAXIS
     Route: 048
     Dates: start: 20070701
  16. PLAVIX [Concomitant]
     Dosage: 75 MG, UNK
     Route: 048
     Dates: start: 20100219
  17. POTASSIUM CHLORIDE [Concomitant]
     Route: 048
     Dates: start: 20100219
  18. TRILIPIX [Concomitant]
     Indication: HYPERLIPIDAEMIA
     Route: 048
     Dates: start: 20030101
  19. VASOTEC [Concomitant]
     Dosage: 10 MG, UNK
     Route: 048
     Dates: start: 20100219
  20. PRAVASTATIN [Concomitant]
     Indication: HYPERLIPIDAEMIA
     Route: 048
     Dates: start: 20030101
  21. ENALAPRIL MALEATE [Concomitant]
     Indication: HYPERTENSION
     Route: 048
     Dates: start: 20030101
  22. TRICOR [Concomitant]
     Dosage: 135 MG, UNK
     Route: 048
     Dates: start: 20100219

REACTIONS (3)
  - DECREASED APPETITE [None]
  - DEHYDRATION [None]
  - HEPATIC ENCEPHALOPATHY [None]
